FAERS Safety Report 15408637 (Version 1)
Quarter: 2018Q3

REPORT INFORMATION
  Report Type: Spontaneous
  Country: JP (occurrence: JP)
  Receive Date: 20180920
  Receipt Date: 20180920
  Transmission Date: 20181010
  Serious: Yes (Hospitalization)
  Sender: FDA-Public Use
  Company Number: JP-ELI_LILLY_AND_COMPANY-JP201809006440

PATIENT
  Age: 60 Year
  Sex: Male

DRUGS (3)
  1. TAS 102 [Suspect]
     Active Substance: TIPIRACIL HYDROCHLORIDE\TRIFLURIDINE
     Indication: COLON CANCER
     Dosage: 110 MG, UNKNOWN
     Route: 048
     Dates: start: 20180820
  2. ERBITUX [Suspect]
     Active Substance: CETUXIMAB
     Dosage: 407 MG, UNKNOWN
     Route: 041
     Dates: start: 20180827
  3. ERBITUX [Suspect]
     Active Substance: CETUXIMAB
     Indication: COLON CANCER
     Dosage: 652 MG, UNKNOWN
     Route: 041
     Dates: start: 20180820, end: 20180820

REACTIONS (2)
  - Off label use [Unknown]
  - Decreased appetite [Recovering/Resolving]

NARRATIVE: CASE EVENT DATE: 20180901
